FAERS Safety Report 6159417-X (Version None)
Quarter: 2009Q2

REPORT INFORMATION
  Report Type: 
  Country: None (occurrence: None)
  Receive Date: 20090417
  Receipt Date: 20090413
  Transmission Date: 20091009
  Serious: Yes (Other)
  Sender: FDA-Public Use
  Company Number: PHHY2009CA08362

PATIENT
  Sex: Male

DRUGS (7)
  1. DIOVAN HCT [Suspect]
     Dosage: 80/12.5 MG, QD
     Route: 048
     Dates: start: 20070109
  2. DIOVAN [Suspect]
     Indication: HYPERTENSION
     Dosage: 80 MG
     Route: 048
     Dates: start: 20060511
  3. DIOVAN [Suspect]
     Dosage: 160 MG QD
     Route: 048
     Dates: start: 20090311
  4. HYDROCHLOROTHIAZIDE [Concomitant]
  5. ATIVAN [Concomitant]
     Dosage: UNK
  6. VALTREX [Concomitant]
     Dosage: 500 UNK, QD
  7. IMOVANE [Concomitant]
     Dosage: 7.5 QHS PRN

REACTIONS (3)
  - BIOPSY PROSTATE [None]
  - PROSTATE CANCER [None]
  - PROSTATOMEGALY [None]
